FAERS Safety Report 5168553-6 (Version None)
Quarter: 2006Q4

REPORT INFORMATION
  Report Type: 
  Country: None (occurrence: None)
  Receive Date: 20061208
  Receipt Date: 20061204
  Transmission Date: 20070319
  Serious: Yes (Disabling)
  Sender: FDA-Public Use
  Company Number: US-MERCK-0612USA00641

PATIENT
  Age: 56 Year
  Sex: Female

DRUGS (11)
  1. CANCIDAS [Suspect]
     Indication: GASTROINTESTINAL CANDIDIASIS
     Route: 042
     Dates: start: 20061127, end: 20061127
  2. CANCIDAS [Suspect]
     Route: 042
     Dates: start: 20061128
  3. CLINDAMYCIN HCL [Concomitant]
     Route: 065
  4. FLAGYL [Concomitant]
     Route: 065
     Dates: end: 20061130
  5. BACTRIM [Concomitant]
     Route: 042
  6. CALCIUM ACETATE [Concomitant]
     Route: 065
  7. ROCEPHIN [Concomitant]
     Route: 065
     Dates: start: 20061203
  8. LASIX [Concomitant]
     Route: 065
  9. DOBUTAMINE [Concomitant]
     Route: 065
  10. HEPARIN [Concomitant]
     Route: 065
  11. SOLU-CORTEF [Concomitant]
     Route: 065

REACTIONS (1)
  - BLINDNESS [None]
